FAERS Safety Report 9781169 (Version 2)
Quarter: 2014Q1

REPORT INFORMATION
  Report Type: Spontaneous
  Country: US (occurrence: None)
  Receive Date: 20131220
  Receipt Date: 20140130
  Transmission Date: 20141002
  Serious: Yes (Other)
  Sender: FDA-Public Use
  Company Number: 130417

PATIENT
  Age: 57 Year
  Sex: Female
  Weight: 56.25 kg

DRUGS (10)
  1. SUPREP BOWEL PREP KIT [Suspect]
     Indication: COLONOSCOPY
     Dosage: 1 X 6 OZ. BOTTLE 1X PO
     Route: 048
     Dates: start: 20131212, end: 20131212
  2. GABAPENTIN [Concomitant]
  3. LASIX [Concomitant]
  4. K SUPPLEMENT [Concomitant]
  5. DOCULASE [Concomitant]
  6. OXYCONTIN [Concomitant]
  7. OXYCODONE [Concomitant]
  8. HYDROMORPHONE [Concomitant]
  9. AMBIEN [Concomitant]
  10. DIAZEPAM [Concomitant]

REACTIONS (11)
  - Abdominal pain [None]
  - Dysstasia [None]
  - Abdominal distension [None]
  - Urinary straining [None]
  - Urine output decreased [None]
  - Dehydration [None]
  - Discomfort [None]
  - Blood potassium decreased [None]
  - Faecaloma [None]
  - Joint swelling [None]
  - Oedema peripheral [None]
